FAERS Safety Report 8008854-7 (Version None)
Quarter: 2011Q4

REPORT INFORMATION
  Report Type: 
  Country: None (occurrence: None)
  Receive Date: 20111227
  Receipt Date: 20111104
  Transmission Date: 20120403
  Serious: Yes (Hospitalization)
  Sender: FDA-Public Use
  Company Number: PHHY2011ES112010

PATIENT
  Age: 71 Year
  Sex: Female
  Weight: 82 kg

DRUGS (3)
  1. DOXORUBICIN HCL [Concomitant]
  2. FLUOROURACIL [Suspect]
     Indication: BREAST CANCER STAGE I
     Dosage: CYCLES OF 21 DAYS
     Dates: start: 20101203, end: 20110322
  3. CYCLOPHOSPHAMIDE [Suspect]
     Indication: BREAST CANCER STAGE I
     Dosage: CYCLES OF 21 DAYS
     Dates: start: 20101203, end: 20110322

REACTIONS (1)
  - FEBRILE NEUTROPENIA [None]
